FAERS Safety Report 8353191-4 (Version None)
Quarter: 2012Q2

REPORT INFORMATION
  Report Type: 
  Country: None (occurrence: None)
  Receive Date: 20120511
  Receipt Date: 20120507
  Transmission Date: 20120825
  Serious: Yes (Hospitalization)
  Sender: FDA-Public Use
  Company Number: NL-MEDIMMUNE-MEDI-0014393

PATIENT
  Sex: Female
  Weight: 3.14 kg

DRUGS (6)
  1. SPIRONOLACTONE [Concomitant]
  2. DICLUFAN [Concomitant]
  3. XYLOMETAZINE [Concomitant]
  4. SYNAGIS [Suspect]
     Indication: HEART DISEASE CONGENITAL
     Route: 030
     Dates: end: 20111208
  5. FUROSEMIDE [Concomitant]
  6. SYNAGIS [Suspect]
     Route: 030
     Dates: start: 20120102, end: 20120102

REACTIONS (2)
  - PYREXIA [None]
  - NASOPHARYNGITIS [None]
